FAERS Safety Report 7700840-7 (Version None)
Quarter: 2011Q3

REPORT INFORMATION
  Report Type: 
  Country: None (occurrence: None)
  Receive Date: 20110822
  Receipt Date: 20110811
  Transmission Date: 20111222
  Serious: Yes (Other)
  Sender: FDA-Public Use
  Company Number: US-AMGEN-USASP2011040848

PATIENT
  Age: 59 Year
  Sex: Female

DRUGS (2)
  1. ENBREL [Suspect]
     Indication: RHEUMATOID ARTHRITIS
     Dosage: 50 MG, QWK
     Dates: start: 20110601
  2. METHOTREXATE [Concomitant]
     Dates: start: 20090101

REACTIONS (6)
  - INJECTION SITE PAIN [None]
  - SWELLING FACE [None]
  - WEIGHT DECREASED [None]
  - FEELING ABNORMAL [None]
  - PAIN [None]
  - MOVEMENT DISORDER [None]
